FAERS Safety Report 24642858 (Version 1)
Quarter: 2024Q4

REPORT INFORMATION
  Report Type: Spontaneous
  Country: FR (occurrence: FR)
  Receive Date: 20241120
  Receipt Date: 20241120
  Transmission Date: 20250115
  Serious: Yes (Other)
  Sender: PFIZER
  Company Number: FR-ROCHE-10000127891

PATIENT
  Age: 78 Year
  Sex: Male
  Weight: 60 kg

DRUGS (23)
  1. BEVACIZUMAB [Suspect]
     Active Substance: BEVACIZUMAB
     Indication: Hepatocellular carcinoma
     Dosage: 1012.5 MG, EVERY 3 WEEKS
     Route: 042
     Dates: start: 20240319
  2. BEVACIZUMAB [Suspect]
     Active Substance: BEVACIZUMAB
     Dosage: 1020 MG, EVERY 3 WEEKS
     Route: 042
     Dates: start: 20240409
  3. TIRAGOLUMAB [Suspect]
     Active Substance: TIRAGOLUMAB
     Indication: Hepatocellular carcinoma
     Dosage: UNK
     Route: 042
     Dates: start: 20240319
  4. TIRAGOLUMAB [Suspect]
     Active Substance: TIRAGOLUMAB
     Dosage: UNK
     Route: 042
     Dates: start: 20240409
  5. ATEZOLIZUMAB [Suspect]
     Active Substance: ATEZOLIZUMAB
     Indication: Hepatocellular carcinoma
     Dosage: 1200 MG, EVERY 3 WEEKS
     Route: 042
     Dates: start: 20240319
  6. ATEZOLIZUMAB [Suspect]
     Active Substance: ATEZOLIZUMAB
     Dosage: 1200 MG, EVERY 3 WEEKS
     Route: 042
     Dates: start: 20240409
  7. ATENOLOL [Concomitant]
     Active Substance: ATENOLOL
     Indication: Myocardial ischaemia
     Dosage: 50 MG, 1X/DAY
     Route: 048
     Dates: start: 2005
  8. SPIRONOLACTONE [Concomitant]
     Active Substance: SPIRONOLACTONE
     Indication: Hypertension
     Dosage: 75 MG, 1X/DAY
     Route: 048
  9. KARDEGIC [Concomitant]
     Active Substance: ASPIRIN DL-LYSINE
     Indication: Myocardial ischaemia
     Dosage: 75 MG, 1X/DAY
     Route: 048
     Dates: start: 2005
  10. PREGABALIN [Concomitant]
     Active Substance: PREGABALIN
     Indication: Type 2 diabetes mellitus
     Dosage: 25 DF, 1X/DAY
     Route: 048
     Dates: end: 20240506
  11. PANTOPRAZOLE [Concomitant]
     Active Substance: PANTOPRAZOLE
     Dosage: 40 MG, 1X/DAY
     Route: 048
  12. LANTUS [Concomitant]
     Active Substance: INSULIN GLARGINE
     Indication: Type 2 diabetes mellitus
     Dosage: 50 IU, 1X/DAY
     Route: 058
  13. ALPRAZOLAM [Concomitant]
     Active Substance: ALPRAZOLAM
     Indication: Depression
     Dosage: FREQ:.33 D;
     Route: 048
  14. CODEINE [Concomitant]
     Active Substance: CODEINE
     Indication: Arthralgia
     Dosage: 30 MG, AS NEEDED
     Route: 048
     Dates: start: 20240409, end: 20240506
  15. ACETAMINOPHEN [Concomitant]
     Active Substance: ACETAMINOPHEN
     Indication: Arthralgia
     Dosage: 1000 MG, AS NEEDED
     Route: 048
  16. DENOSUMAB [Concomitant]
     Active Substance: DENOSUMAB
     Dosage: 120 MG, MONTHLY
     Route: 058
     Dates: start: 20240506
  17. CALCIUM [Concomitant]
     Active Substance: CALCIUM
     Dosage: 500 MG, 1X/DAY
     Route: 048
     Dates: start: 20240506
  18. MORPHINE SULFATE [Concomitant]
     Active Substance: MORPHINE SULFATE
     Indication: Arthralgia
     Dosage: 5 MG, AS NEEDED
     Route: 048
     Dates: start: 20240506, end: 20240522
  19. MORPHINE SULFATE [Concomitant]
     Active Substance: MORPHINE SULFATE
     Dosage: 10 MG, AS NEEDED
     Route: 048
     Dates: start: 20240522
  20. MORPHINE SULFATE [Concomitant]
     Active Substance: MORPHINE SULFATE
     Dosage: 20 MG, FREQ:.5 D;
     Route: 048
     Dates: start: 20240506, end: 20240522
  21. POLYETHYLENE GLYCOLS [Concomitant]
     Active Substance: POLYETHYLENE GLYCOLS
     Indication: Constipation
     Dosage: 20 MG, 1X/DAY
     Route: 048
  22. FENTANYL [Concomitant]
     Active Substance: FENTANYL
     Indication: Arthralgia
     Dosage: 37 UG, FREQ:3 D;
     Route: 062
     Dates: start: 20240522
  23. NALOXEGOL OXALATE [Concomitant]
     Active Substance: NALOXEGOL OXALATE
     Indication: Constipation
     Dosage: 25 MG, 1X/DAY
     Route: 048
     Dates: start: 20240522

REACTIONS (2)
  - Hyperthyroidism [Not Recovered/Not Resolved]
  - Off label use [Unknown]

NARRATIVE: CASE EVENT DATE: 20240319
